FAERS Safety Report 8455252-8 (Version None)
Quarter: 2012Q2

REPORT INFORMATION
  Report Type: 
  Country: None (occurrence: None)
  Receive Date: 20120621
  Receipt Date: 20120611
  Transmission Date: 20120825
  Serious: Yes (Death, Life-Threatening, Other)
  Sender: FDA-Public Use
  Company Number: US-SANOFI-AVENTIS-2012SA040608

PATIENT
  Sex: Female
  Weight: 90.7 kg

DRUGS (22)
  1. LEVOTHYROXINE SODIUM [Concomitant]
  2. VISTARIL [Interacting]
     Indication: ILL-DEFINED DISORDER
     Route: 030
  3. NYSTATIN [Concomitant]
  4. ACETYLSALICYLIC ACID SRT [Concomitant]
  5. AMIODARONE HYDROCHLORIDE [Interacting]
     Indication: ILL-DEFINED DISORDER
     Route: 065
  6. AZITHROMYCIN [Interacting]
     Indication: BRONCHITIS
     Route: 048
  7. ZOLOFT [Interacting]
     Indication: ILL-DEFINED DISORDER
     Route: 065
  8. SPIRONOLACTONE [Concomitant]
  9. METOLAZONE [Concomitant]
  10. FUROSEMIDE [Concomitant]
  11. TUSSIONEX /OLD FORM/ ^PENNWALT^ [Concomitant]
  12. LORAZEPAM [Concomitant]
  13. GLYBURIDE [Suspect]
     Indication: ILL-DEFINED DISORDER
     Route: 065
  14. DIPHENHYDRAMINE HYDROCHLORIDE [Interacting]
     Indication: ILL-DEFINED DISORDER
     Route: 065
  15. ZAFIRLUKAST [Concomitant]
  16. ZOLPIDEM TARTRATE [Concomitant]
  17. SERETIDE MITE [Concomitant]
  18. LOSARTAN POTASSIUM [Concomitant]
  19. AZITHROMYCIN [Interacting]
     Indication: CELLULITIS
     Route: 048
  20. DOCUSATE SODIUM [Concomitant]
  21. WARFARIN SODIUM [Concomitant]
  22. DEXAMETHASONE ACETATE [Concomitant]

REACTIONS (4)
  - DRUG INTERACTION [None]
  - ISCHAEMIC CARDIOMYOPATHY [None]
  - HYPERSENSITIVITY [None]
  - RASH [None]
